FAERS Safety Report 19063230 (Version 1)
Quarter: 2021Q1

REPORT INFORMATION
  Report Type: Spontaneous
  Country: NL (occurrence: NL)
  Receive Date: 20210326
  Receipt Date: 20210326
  Transmission Date: 20210420
  Serious: Yes (Death, Other)
  Sender: FDA-Public Use
  Company Number: NL-AMGEN-NLDSP2021045733

PATIENT

DRUGS (4)
  1. PREDNISONE. [Concomitant]
     Active Substance: PREDNISONE
     Dosage: UNK
  2. TALIMOGENE LAHERPAREPVEC [Suspect]
     Active Substance: TALIMOGENE LAHERPAREPVEC
     Indication: METASTATIC MALIGNANT MELANOMA
     Dosage: UNK (10^6 PLAQUE?FORMING UNITS (PFU)/ML)
     Route: 026
     Dates: start: 201810
  3. MYCOPHENOLATE [Concomitant]
     Active Substance: MYCOPHENOLIC ACID
     Dosage: UNK
  4. TALIMOGENE LAHERPAREPVEC [Suspect]
     Active Substance: TALIMOGENE LAHERPAREPVEC
     Dosage: UNK (10^8 PFU/ML EVERY 2 WEEKS, SECOND DOSE WAS ADMINISTERED 3 WEEKS AFTER INITIAL DOSE)
     Route: 026

REACTIONS (11)
  - Death [Fatal]
  - Respiratory fatigue [Unknown]
  - Metastatic malignant melanoma [Unknown]
  - Myocarditis [Unknown]
  - Pyrexia [Unknown]
  - Hepatitis [Unknown]
  - Immune system disorder [Unknown]
  - Myositis [Unknown]
  - Oxygen saturation abnormal [Unknown]
  - Cough [Unknown]
  - Dyspnoea [Unknown]

NARRATIVE: CASE EVENT DATE: 201901
